FAERS Safety Report 14286129 (Version 1)
Quarter: 2017Q4

REPORT INFORMATION
  Report Type: Spontaneous
  Country: US (occurrence: US)
  Receive Date: 20171214
  Receipt Date: 20171214
  Transmission Date: 20180321
  Serious: No
  Sender: FDA-Public Use
  Company Number: US-009507513-1711USA011771

PATIENT
  Sex: Female

DRUGS (1)
  1. NEXPLANON [Suspect]
     Active Substance: ETONOGESTREL
     Indication: CONTRACEPTION
     Dosage: 1 ROD IN UNSPECIFIED ARM
     Route: 059
     Dates: start: 201705, end: 20171127

REACTIONS (2)
  - Implant site erythema [Unknown]
  - Implant site infection [Unknown]

NARRATIVE: CASE EVENT DATE: 2017
